FAERS Safety Report 8867048 (Version 1)
Quarter: 2012Q4

REPORT INFORMATION
  Report Type: 
  Country: US (occurrence: US)
  Receive Date: 20121025
  Receipt Date: 20121025
  Transmission Date: 20130627
  Serious: No
  Sender: FDA-Public Use
  Company Number: US-AMGEN-USASP2012014534

PATIENT
  Age: 61 Year
  Sex: Female
  Weight: 77.1 kg

DRUGS (7)
  1. ENBREL [Suspect]
     Indication: PRODUCT USED FOR UNKNOWN INDICATION
     Dosage: 50 mg, qwk
  2. LIPITOR [Concomitant]
     Dosage: 20 mg, UNK
  3. RANITIDINE [Concomitant]
     Dosage: 150 mg, UNK
  4. CENTRUM                            /00554501/ [Concomitant]
  5. CALCIUM [Concomitant]
     Dosage: 500 mg, UNK
  6. VITAMIN D /00107901/ [Concomitant]
  7. NAPROSYN /00256201/ [Concomitant]
     Dosage: 500 mg, UNK

REACTIONS (2)
  - Contusion [Unknown]
  - Vitamin D decreased [Unknown]
